FAERS Safety Report 4443471-7 (Version None)
Quarter: 2004Q3

REPORT INFORMATION
  Report Type: 
  Country: None (occurrence: None)
  Receive Date: 20040903
  Receipt Date: 20040903
  Transmission Date: 20050211
  Serious: Yes (Hospitalization)
  Sender: FDA-Public Use
  Company Number: None

PATIENT
  Age: 43 Year
  Sex: Female
  Weight: 82.5547 kg

DRUGS (2)
  1. IRINOTECAN [Suspect]
     Indication: OVARIAN CANCER
     Dosage: 85 MG/M2 2X3 WKS IV
     Route: 042
     Dates: start: 20040229, end: 20040802
  2. CAPECITABINE [Suspect]
     Indication: OVARIAN CANCER
     Dosage: 1500 MG/M2 1-14 DAYS ORAL
     Route: 048
     Dates: start: 20040329, end: 20040808

REACTIONS (12)
  - ABDOMINAL TENDERNESS [None]
  - ATELECTASIS [None]
  - CHEST PAIN [None]
  - COUGH [None]
  - DISEASE PROGRESSION [None]
  - DYSPNOEA [None]
  - HEADACHE [None]
  - INFLAMMATION [None]
  - NUCLEAR MAGNETIC RESONANCE IMAGING BRAIN ABNORMAL [None]
  - PLEURAL EFFUSION [None]
  - RESPIRATORY DISORDER [None]
  - VISION BLURRED [None]
